FAERS Safety Report 6563206-1 (Version None)
Quarter: 2010Q1

REPORT INFORMATION
  Report Type: 
  Country: None (occurrence: None)
  Receive Date: 20100130
  Receipt Date: 20091229
  Transmission Date: 20100710
  Serious: No
  Sender: FDA-Public Use
  Company Number: US-ABBOTT-09P-163-0613072-00

PATIENT
  Sex: Male
  Weight: 158.9 kg

DRUGS (6)
  1. HUMIRA [Suspect]
     Indication: PSORIASIS
     Route: 058
     Dates: start: 20090801
  2. LISINOPRIL [Concomitant]
     Indication: HYPERTENSION
  3. SEROQUEL [Concomitant]
     Indication: SLEEP DISORDER THERAPY
  4. EFFEXOR [Concomitant]
     Indication: DEPRESSION
  5. ABILIFY [Concomitant]
     Indication: DEPRESSION
  6. AMBIEN [Concomitant]
     Indication: SLEEP DISORDER THERAPY

REACTIONS (1)
  - INJECTION SITE PAIN [None]
